FAERS Safety Report 19351253 (Version 2)
Quarter: 2021Q3

REPORT INFORMATION
  Report Type: Report from Study
  Country: None (occurrence: DE)
  Receive Date: 20210531
  Receipt Date: 20210710
  Transmission Date: 20211014
  Serious: Yes (Life-Threatening, Hospitalization)
  Sender: FDA-Public Use
  Company Number: DE-ABBVIE-21K-062-3928327-00

PATIENT
  Age: 66 Year
  Sex: Male
  Weight: 78 kg

DRUGS (12)
  1. SODERM PLUS [Concomitant]
     Indication: THERAPEUTIC PROCEDURE
     Route: 065
     Dates: start: 20180418
  2. IMBRUVICA [Suspect]
     Active Substance: IBRUTINIB
     Route: 048
     Dates: start: 20180220, end: 20191210
  3. FORTIMEL ENERGY [Concomitant]
     Indication: THERAPEUTIC PROCEDURE
     Route: 065
     Dates: start: 20180102
  4. DEKRISTOL [Concomitant]
     Active Substance: CHOLECALCIFEROL
     Indication: THERAPEUTIC PROCEDURE
     Route: 065
     Dates: start: 20200315
  5. MOMETASONE FUROATE. [Concomitant]
     Active Substance: MOMETASONE FUROATE
     Indication: THERAPEUTIC PROCEDURE
     Route: 065
     Dates: start: 20180827, end: 20181008
  6. RAMIPRIL. [Concomitant]
     Active Substance: RAMIPRIL
     Indication: THERAPEUTIC PROCEDURE
     Route: 065
     Dates: start: 20201116
  7. IMBRUVICA [Suspect]
     Active Substance: IBRUTINIB
     Indication: CHRONIC LYMPHOCYTIC LEUKAEMIA
     Route: 048
     Dates: start: 20191211
  8. IMBRUVICA [Suspect]
     Active Substance: IBRUTINIB
     Route: 048
     Dates: start: 20191211, end: 20201024
  9. IMBRUVICA [Suspect]
     Active Substance: IBRUTINIB
     Indication: CHRONIC LYMPHOCYTIC LEUKAEMIA
     Route: 048
     Dates: start: 20180102, end: 20180212
  10. LERCANIDIPINE [Concomitant]
     Active Substance: LERCANIDIPINE
     Indication: THERAPEUTIC PROCEDURE
     Route: 065
     Dates: start: 20201116
  11. ALLOPURINOL. [Concomitant]
     Active Substance: ALLOPURINOL
     Indication: PROPHYLAXIS
     Route: 065
  12. RITUXIMAB. [Concomitant]
     Active Substance: RITUXIMAB
     Indication: THERAPEUTIC PROCEDURE
     Route: 065
     Dates: start: 20201103, end: 20201103

REACTIONS (3)
  - Acute kidney injury [Recovered/Resolved with Sequelae]
  - Glomerulonephritis [Recovered/Resolved with Sequelae]
  - Respiratory failure [Recovered/Resolved]

NARRATIVE: CASE EVENT DATE: 20201024
